FAERS Safety Report 18529956 (Version 1)
Quarter: 2020Q4

REPORT INFORMATION
  Report Type: Spontaneous
  Country: US (occurrence: US)
  Receive Date: 20201120
  Receipt Date: 20201120
  Transmission Date: 20210114
  Serious: Yes (Other)
  Sender: FDA-Public Use
  Company Number: US-PURDUE-USA-2020-0165562

PATIENT
  Age: 14 Year

DRUGS (2)
  1. PERCOCET                           /00446701/ [Suspect]
     Active Substance: ACETAMINOPHEN\OXYCODONE HYDROCHLORIDE\OXYCODONE TEREPHTHALATE
     Indication: TOOTH EXTRACTION
     Dosage: 7.5 MG, UNK
     Route: 065
  2. HYDROCODONE BITARTRATE (SIMILAR TO NDA 206627) [Suspect]
     Active Substance: HYDROCODONE BITARTRATE
     Indication: TOOTH EXTRACTION
     Route: 048

REACTIONS (6)
  - Road traffic accident [Unknown]
  - Drug withdrawal syndrome [Unknown]
  - Drug dependence [Unknown]
  - Drug abuse [Unknown]
  - Pain [Unknown]
  - Emotional distress [Unknown]
